FAERS Safety Report 14862751 (Version 1)
Quarter: 2018Q2

REPORT INFORMATION
  Report Type: Spontaneous
  Country: US (occurrence: US)
  Receive Date: 20180508
  Receipt Date: 20180508
  Transmission Date: 20180711
  Serious: No
  Sender: FDA-Public Use
  Company Number: US-TARO-2017TAR00583

PATIENT
  Sex: Female
  Weight: 83.9 kg

DRUGS (12)
  1. CARBAMAZEPINE EXTENDED RELEASE [Suspect]
     Active Substance: CARBAMAZEPINE
     Dosage: 400 MG, 1X/DAY
     Route: 048
     Dates: start: 201707
  2. NEURONTIN [Concomitant]
     Active Substance: GABAPENTIN
  3. CARBAMAZEPINE EXTENDED RELEASE [Suspect]
     Active Substance: CARBAMAZEPINE
     Dosage: 200 MG, 1X/DAY
     Route: 048
     Dates: start: 201706, end: 201706
  4. CARBAMAZEPINE EXTENDED RELEASE [Suspect]
     Active Substance: CARBAMAZEPINE
     Dosage: 400 MG, 1X/DAY
     Route: 048
     Dates: start: 201706, end: 201706
  5. CARBAMAZEPINE EXTENDED RELEASE [Suspect]
     Active Substance: CARBAMAZEPINE
     Dosage: 600 MG, 1X/DAY
     Route: 048
     Dates: start: 201706, end: 201707
  6. TEGRETOL [Concomitant]
     Active Substance: CARBAMAZEPINE
  7. SIMVASTATIN. [Concomitant]
     Active Substance: SIMVASTATIN
  8. UNSPECIFIED SUPPLEMENTS [Concomitant]
  9. CARBAMAZEPINE EXTENDED RELEASE [Suspect]
     Active Substance: CARBAMAZEPINE
     Indication: MOOD SWINGS
     Dosage: 100 MG, 1X/DAY
     Route: 048
     Dates: start: 2017, end: 201706
  10. LATUDA [Concomitant]
     Active Substance: LURASIDONE HYDROCHLORIDE
  11. ASPIRIN. [Concomitant]
     Active Substance: ASPIRIN
     Dosage: 81 MG, UNK
  12. OMEPRAZOLE. [Concomitant]
     Active Substance: OMEPRAZOLE

REACTIONS (3)
  - Somnolence [Recovered/Resolved]
  - Irritability [Not Recovered/Not Resolved]
  - Drug ineffective for unapproved indication [Not Recovered/Not Resolved]

NARRATIVE: CASE EVENT DATE: 2017
